FAERS Safety Report 23693249 (Version 4)
Quarter: 2025Q3

REPORT INFORMATION
  Report Type: Spontaneous
  Country: JP (occurrence: JP)
  Receive Date: 20240401
  Receipt Date: 20250809
  Transmission Date: 20251021
  Serious: Yes (Death, Other)
  Sender: ALEXION PHARMACEUTICALS
  Company Number: 2024A076423

PATIENT
  Age: 91 Year
  Sex: Female
  Weight: 38 kg

DRUGS (25)
  1. ONDEXXYA [Suspect]
     Active Substance: ANDEXANET ALFA
     Indication: Cerebellar haemorrhage
     Dates: start: 20240313, end: 20240313
  2. ONDEXXYA [Suspect]
     Active Substance: ANDEXANET ALFA
  3. EDOXABAN TOSYLATE [Suspect]
     Active Substance: EDOXABAN TOSYLATE
     Dates: end: 20240313
  4. VIBEGRON [Concomitant]
     Active Substance: VIBEGRON
     Indication: Hypertonic bladder
     Dates: end: 20240313
  5. LANSOPRAZOLE [Concomitant]
     Active Substance: LANSOPRAZOLE
     Indication: Gastritis prophylaxis
     Dates: end: 20240313
  6. LANSOPRAZOLE [Concomitant]
     Active Substance: LANSOPRAZOLE
     Dates: end: 20240317
  7. DULOXETINE [Concomitant]
     Active Substance: DULOXETINE
     Indication: Diabetic neuropathy
     Dates: end: 20240313
  8. ELDECALCITOL [Concomitant]
     Active Substance: ELDECALCITOL
     Indication: Osteoporosis
     Dates: end: 20240313
  9. VILDAGLIPTIN [Concomitant]
     Active Substance: VILDAGLIPTIN
     Indication: Diabetes mellitus
     Dates: end: 20240313
  10. MAGNESIUM OXIDE [Concomitant]
     Active Substance: MAGNESIUM OXIDE
     Indication: Constipation
     Dates: end: 20240313
  11. MAGNESIUM OXIDE [Concomitant]
     Active Substance: MAGNESIUM OXIDE
     Indication: Constipation prophylaxis
  12. PRAVASTATIN SODIUM [Concomitant]
     Active Substance: PRAVASTATIN SODIUM
     Indication: Dyslipidaemia
     Dates: end: 20240313
  13. MOSAPRIDE CITRATE [Concomitant]
     Active Substance: MOSAPRIDE CITRATE
     Indication: Gastritis prophylaxis
     Dates: end: 20240313
  14. HERBAL NOS [Concomitant]
     Active Substance: HERBALS
     Indication: Decreased appetite
     Dates: end: 20240313
  15. VOGLIBOSE [Concomitant]
     Active Substance: VOGLIBOSE
     Indication: Diabetes mellitus
     Dates: end: 20240313
  16. DAYVIGO [Concomitant]
     Active Substance: LEMBOREXANT
     Indication: Insomnia
     Dates: end: 20240313
  17. HERBALS [Concomitant]
     Active Substance: HERBALS
     Indication: Insomnia
     Dates: end: 20240313
  18. METHYLCOBALAMIN [Concomitant]
     Active Substance: METHYLCOBALAMIN
     Indication: Diabetic neuropathy
     Dates: end: 20240313
  19. ACETAMINOPHEN [Concomitant]
     Active Substance: ACETAMINOPHEN
  20. ACETAMINOPHEN [Concomitant]
     Active Substance: ACETAMINOPHEN
  21. ALENDRONATE [Concomitant]
     Active Substance: ALENDRONATE SODIUM
     Indication: Osteoporosis
  22. ALENDRONATE [Concomitant]
     Active Substance: ALENDRONATE SODIUM
  23. POTASSIUM GLUCONATE [Concomitant]
     Active Substance: POTASSIUM GLUCONATE
     Dosage: 4 MEQ/G/DOSE, 3 G/DAY
     Dates: start: 20240316, end: 20240317
  24. ONDEXXYA [Suspect]
     Active Substance: ANDEXANET ALFA
     Indication: Cerebellar haemorrhage
  25. ONDEXXYA [Suspect]
     Active Substance: ANDEXANET ALFA
     Indication: Cerebellar haemorrhage

REACTIONS (7)
  - Pneumonia aspiration [Fatal]
  - Bundle branch block left [Unknown]
  - Myocardial ischaemia [Unknown]
  - General physical health deterioration [Unknown]
  - Blood pressure systolic increased [Unknown]
  - Strabismus [Unknown]
  - Renal impairment [Unknown]

NARRATIVE: CASE EVENT DATE: 20240301
